FAERS Safety Report 8938977 (Version 1)
Quarter: 2012Q4

REPORT INFORMATION
  Report Type: 
  Country: US (occurrence: US)
  Receive Date: 20121203
  Receipt Date: 20121203
  Transmission Date: 20130627
  Serious: No
  Sender: FDA-Public Use
  Company Number: US-PFIZER INC-2012301401

PATIENT
  Age: 47 Year
  Sex: Female
  Weight: 58.05 kg

DRUGS (6)
  1. EFFEXOR [Suspect]
     Indication: ATTENTION DEFICIT-HYPERACTIVITY DISORDER
     Dosage: UNK
  2. EFFEXOR [Suspect]
     Indication: ANXIETY
     Dosage: 225 mg daily
  3. EFFEXOR [Suspect]
     Dosage: 275 daily
  4. VENLAFAXINE HYDROCHLORIDE [Suspect]
     Indication: ATTENTION DEFICIT-HYPERACTIVITY DISORDER
     Dosage: UNK
  5. VENLAFAXINE HYDROCHLORIDE [Suspect]
     Indication: ANXIETY
  6. ADDERALL [Concomitant]
     Indication: ATTENTION DEFICIT-HYPERACTIVITY DISORDER
     Dosage: 5 mg, 1x/day

REACTIONS (3)
  - Drug ineffective [Unknown]
  - Withdrawal syndrome [Unknown]
  - Dizziness [Unknown]
